FAERS Safety Report 6140663-6 (Version None)
Quarter: 2009Q2

REPORT INFORMATION
  Report Type: 
  Country: None (occurrence: None)
  Receive Date: 20090402
  Receipt Date: 20090327
  Transmission Date: 20091009
  Serious: Yes (Other)
  Sender: FDA-Public Use
  Company Number: US-ASTRAZENECA-2008UW07913

PATIENT
  Age: 74 Year
  Sex: Female
  Weight: 76.7 kg

DRUGS (7)
  1. CRESTOR [Suspect]
     Indication: BLOOD CHOLESTEROL INCREASED
     Route: 048
  2. CRESTOR [Suspect]
     Route: 048
  3. COUMADIN [Concomitant]
  4. AMLODIPINE BESYLATE [Concomitant]
  5. LISINOPRIL [Concomitant]
  6. ADVAIR HFA [Concomitant]
  7. ALBUTEROL [Concomitant]

REACTIONS (7)
  - BLOOD CREATININE INCREASED [None]
  - BLOOD UREA INCREASED [None]
  - CREATININE RENAL CLEARANCE DECREASED [None]
  - GLOMERULAR FILTRATION RATE DECREASED [None]
  - GOUT [None]
  - MYALGIA [None]
  - OEDEMA PERIPHERAL [None]
